FAERS Safety Report 5120742-2 (Version None)
Quarter: 2006Q4

REPORT INFORMATION
  Report Type: 
  Country: None (occurrence: None)
  Receive Date: 20061003
  Receipt Date: 20061003
  Transmission Date: 20070319
  Serious: No
  Sender: FDA-Public Use
  Company Number: None

PATIENT
  Sex: Male
  Weight: 96.1626 kg

DRUGS (2)
  1. ALBUTEROL SULFATE HFA INHALATION [Suspect]
     Indication: ASTHMA
     Dosage: 2 INHALATIONS EVERY 4HRS PRN PO
     Route: 048
     Dates: start: 20060711, end: 20060811
  2. ALBUTEROL SULFATE HFA INHALATION [Suspect]
     Indication: BRONCHITIS
     Dosage: 2 INHALATIONS EVERY 4HRS PRN PO
     Route: 048
     Dates: start: 20060831, end: 20060915

REACTIONS (3)
  - DEVICE FAILURE [None]
  - DRUG EFFECT DECREASED [None]
  - PHARMACEUTICAL PRODUCT COMPLAINT [None]
